FAERS Safety Report 4333091-7 (Version None)
Quarter: 2004Q1

REPORT INFORMATION
  Report Type: 
  Country: None (occurrence: None)
  Receive Date: 20040330
  Receipt Date: 20040316
  Transmission Date: 20041129
  Serious: Yes (Hospitalization)
  Sender: FDA-Public Use
  Company Number: MK200403-0186-1

PATIENT
  Age: 8 Year
  Sex: Female

DRUGS (1)
  1. IMIPRAMINE [Suspect]
     Indication: ENURESIS
     Dosage: 25 MG

REACTIONS (13)
  - ABDOMINAL MASS [None]
  - ANXIETY [None]
  - AORTIC VALVE INCOMPETENCE [None]
  - CARDIAC MURMUR [None]
  - DILATATION ATRIAL [None]
  - HAEMORRHAGE [None]
  - HYPOTENSION [None]
  - PHAEOCHROMOCYTOMA [None]
  - PULMONARY VALVE STENOSIS [None]
  - PULSE ABNORMAL [None]
  - SINUS TACHYCARDIA [None]
  - VENTRICULAR HYPERTROPHY [None]
  - WHITE BLOOD CELL COUNT INCREASED [None]
